FAERS Safety Report 10070858 (Version 2)
Quarter: 2014Q2

REPORT INFORMATION
  Report Type: Spontaneous
  Country: BR (occurrence: BR)
  Receive Date: 20140410
  Receipt Date: 20140414
  Transmission Date: 20141212
  Serious: Yes (Other)
  Sender: FDA-Public Use
  Company Number: BR-GLAXOSMITHKLINE-A1068726A

PATIENT
  Sex: Female
  Weight: 55 kg

DRUGS (6)
  1. NIQUITIN PATCH [Suspect]
     Indication: SMOKING CESSATION THERAPY
     Route: 062
     Dates: start: 20140403
  2. AEROLIN [Concomitant]
     Indication: ASTHMATIC CRISIS
  3. ANTIDEPRESSANT [Concomitant]
  4. ANXIOLYTIC [Concomitant]
  5. AMITRIPTYLINE [Concomitant]
  6. ALENIA [Concomitant]

REACTIONS (3)
  - Asthmatic crisis [Unknown]
  - Drug ineffective [Not Recovered/Not Resolved]
  - Nicotine dependence [Not Recovered/Not Resolved]
